FAERS Safety Report 15103724 (Version 5)
Quarter: 2018Q3

REPORT INFORMATION
  Report Type: Report from Study
  Country: None (occurrence: TR)
  Receive Date: 20180703
  Receipt Date: 20180810
  Transmission Date: 20181010
  Serious: Yes (Death, Life-Threatening, Hospitalization)
  Sender: FDA-Public Use
  Company Number: TR-ABBVIE-18P-161-2406813-00

PATIENT
  Age: 71 Year
  Sex: Male
  Weight: 72 kg

DRUGS (20)
  1. VENETOCLAX. [Suspect]
     Active Substance: VENETOCLAX
     Route: 048
     Dates: start: 20180408, end: 20180408
  2. PROTECH [Concomitant]
     Route: 048
     Dates: start: 20180701, end: 20180712
  3. VENETOCLAX. [Suspect]
     Active Substance: VENETOCLAX
     Route: 048
     Dates: start: 20180705, end: 20180711
  4. ALLOPURINOL. [Concomitant]
     Active Substance: ALLOPURINOL
     Indication: PROPHYLAXIS
     Route: 048
     Dates: start: 20180409, end: 20180414
  5. ALLOPURINOL. [Concomitant]
     Active Substance: ALLOPURINOL
     Route: 048
     Dates: start: 20180507, end: 20180514
  6. AZACITIDINE. [Suspect]
     Active Substance: AZACITIDINE
     Dosage: DAYS 1?7 OF EACH 28?DAY CYCLE
     Route: 058
     Dates: start: 20180705, end: 20180711
  7. PARTEMOL [Concomitant]
     Indication: ANTIPYRESIS
     Route: 042
     Dates: start: 20180617
  8. VENETOCLAX. [Suspect]
     Active Substance: VENETOCLAX
     Route: 048
     Dates: start: 20180409, end: 20180630
  9. NORMAL SALINE SOLUTION (0.9% SODIUM CHLORIDE) [Concomitant]
     Route: 042
     Dates: start: 20180710, end: 20180710
  10. VENETOCLAX. [Suspect]
     Active Substance: VENETOCLAX
     Indication: ACUTE MYELOID LEUKAEMIA
     Route: 048
     Dates: start: 20180407, end: 20180407
  11. AZACITIDINE. [Suspect]
     Active Substance: AZACITIDINE
     Indication: ACUTE MYELOID LEUKAEMIA
     Dosage: DAYS 1?7 OF EACH 28?DAY CYCLE
     Route: 058
     Dates: start: 20180407, end: 20180610
  12. NORMAL SALINE SOLUTION (0.9% SODIUM CHLORIDE) [Concomitant]
     Indication: PROPHYLAXIS
     Route: 042
     Dates: start: 20180409, end: 20180409
  13. PROTECH [Concomitant]
     Route: 048
     Dates: start: 20180413, end: 20180414
  14. PROTECH [Concomitant]
     Route: 048
     Dates: start: 20180604, end: 20180611
  15. PROTECH [Concomitant]
     Indication: ANTACID THERAPY
     Route: 048
     Dates: start: 20180407, end: 20180407
  16. PROTECH [Concomitant]
     Indication: GASTROOESOPHAGEAL REFLUX PROPHYLAXIS
     Route: 048
     Dates: start: 20180409, end: 20180411
  17. PROTECH [Concomitant]
     Route: 048
     Dates: start: 20180507, end: 20180514
  18. ALLOPURINOL. [Concomitant]
     Active Substance: ALLOPURINOL
     Route: 048
     Dates: start: 20180604, end: 20180611
  19. NORMAL SALINE SOLUTION (0.9% SODIUM CHLORIDE) [Concomitant]
     Route: 042
     Dates: start: 20180507, end: 20180508
  20. PROTECH [Concomitant]
     Route: 048
     Dates: start: 20180508, end: 20180514

REACTIONS (4)
  - Cardiac arrest [Fatal]
  - Febrile neutropenia [Recovered/Resolved]
  - Rectal abscess [Unknown]
  - Sepsis [Unknown]

NARRATIVE: CASE EVENT DATE: 20180701
